FAERS Safety Report 4500534-5 (Version None)
Quarter: 2004Q4

REPORT INFORMATION
  Report Type: 
  Country: None (occurrence: None)
  Receive Date: 20041109
  Receipt Date: 20041026
  Transmission Date: 20050328
  Serious: Yes (Hospitalization)
  Sender: FDA-Public Use
  Company Number: CERZ-10607

PATIENT
  Age: 38 Year
  Sex: Female
  Weight: 61 kg

DRUGS (2)
  1. CEREZYME [Suspect]
     Indication: GAUCHER'S DISEASE
     Dosage: 3800 UNITS Q2WKS IV
     Route: 042
     Dates: start: 19970801
  2. CEREZYME [Suspect]

REACTIONS (7)
  - BURNS THIRD DEGREE [None]
  - FUNGAL INFECTION [None]
  - PHARYNGITIS [None]
  - PNEUMONIA [None]
  - RESPIRATORY FUME INHALATION DISORDER [None]
  - SKIN GRAFT [None]
  - TRACHEAL DISORDER [None]
